FAERS Safety Report 21968202 (Version 1)
Quarter: 2023Q1

REPORT INFORMATION
  Report Type: Spontaneous
  Country: JP (occurrence: None)
  Receive Date: 20230208
  Receipt Date: 20230208
  Transmission Date: 20230417
  Serious: Yes (Hospitalization, Other)
  Sender: FDA-Public Use
  Company Number: 2023A029465

PATIENT
  Age: 72 Year
  Sex: Female

DRUGS (2)
  1. LYNPARZA [Suspect]
     Active Substance: OLAPARIB
     Indication: Fallopian tube cancer
     Dosage: DOSE UNKNOWN
     Route: 048
     Dates: start: 202011
  2. MICONAZOLE [Concomitant]
     Active Substance: MICONAZOLE
     Indication: Oral candidiasis
     Dosage: DOSE UNKNOWN
     Route: 065

REACTIONS (2)
  - Anaemia [Unknown]
  - Interstitial lung disease [Unknown]
